FAERS Safety Report 8849014 (Version 1)
Quarter: 2012Q4

REPORT INFORMATION
  Report Type: Spontaneous
  Country: US (occurrence: None)
  Receive Date: 20121017
  Receipt Date: 20121017
  Transmission Date: 20130627
  Serious: No
  Sender: FDA-Public Use
  Company Number: None

PATIENT
  Age: 54 Year
  Sex: Female
  Weight: 63.5 kg

DRUGS (2)
  1. ASTHMANEFRIN [Suspect]
     Dosage: 1 inhalation PRN, 54
     Dates: start: 20120915, end: 20120918
  2. OXYGEN [Concomitant]

REACTIONS (4)
  - Muscle twitching [None]
  - Dyskinesia [None]
  - Anaphylactic reaction [None]
  - Increased upper airway secretion [None]
